FAERS Safety Report 12932352 (Version 1)
Quarter: 2016Q4

REPORT INFORMATION
  Report Type: Spontaneous
  Country: PR (occurrence: PR)
  Receive Date: 20161111
  Receipt Date: 20161111
  Transmission Date: 20170207
  Serious: Yes (Other)
  Sender: FDA-Public Use
  Company Number: PR-ABBVIE-16P-131-1773370-00

PATIENT
  Age: 69 Year
  Sex: Female

DRUGS (8)
  1. FOLIC ACID. [Concomitant]
     Active Substance: FOLIC ACID
     Indication: AORTIC VALVE INCOMPETENCE
  2. CARDIZEM [Concomitant]
     Active Substance: DILTIAZEM HYDROCHLORIDE
     Indication: AORTIC VALVE INCOMPETENCE
  3. DERMAZINC [Concomitant]
     Indication: PSORIASIS
     Dosage: SOAP
     Route: 061
  4. MINT [Concomitant]
     Active Substance: MINT\SPEARMINT
     Indication: CHRONIC GASTRITIS
     Route: 048
  5. HUMIRA [Suspect]
     Active Substance: ADALIMUMAB
     Route: 058
     Dates: start: 2015
  6. DIOVAN [Concomitant]
     Active Substance: VALSARTAN
     Indication: AORTIC VALVE INCOMPETENCE
     Route: 048
  7. ANISEED [Concomitant]
     Indication: CHRONIC GASTRITIS
     Route: 048
  8. HUMIRA [Suspect]
     Active Substance: ADALIMUMAB
     Indication: ARTHRITIS
     Route: 058
     Dates: start: 2012, end: 2015

REACTIONS (7)
  - Gastritis [Recovering/Resolving]
  - Dysphagia [Recovering/Resolving]
  - Dyspnoea [Recovering/Resolving]
  - Arthralgia [Not Recovered/Not Resolved]
  - Haematoma [Not Recovered/Not Resolved]
  - Capillary fragility [Not Recovered/Not Resolved]
  - Drug ineffective [Unknown]

NARRATIVE: CASE EVENT DATE: 20161028
